FAERS Safety Report 15481487 (Version 2)
Quarter: 2025Q3

REPORT INFORMATION
  Report Type: Report from Study
  Country: EU (occurrence: EU)
  Receive Date: 20181010
  Receipt Date: 20250715
  Transmission Date: 20251021
  Serious: Yes (Other)
  Sender: AUROBINDO
  Company Number: EU-AUROBINDO-AUR-APL-2018-049270

PATIENT
  Age: 81 Year
  Sex: Female

DRUGS (1)
  1. LOSARTAN [Suspect]
     Active Substance: LOSARTAN
     Indication: Hypertension
     Route: 065

REACTIONS (6)
  - Gastrointestinal disorder [Recovering/Resolving]
  - Weight decreased [Unknown]
  - Dysphonia [Unknown]
  - Cough [Unknown]
  - Diarrhoea [Unknown]
  - Abdominal pain [Unknown]
